FAERS Safety Report 21546569 (Version 2)
Quarter: 2023Q1

REPORT INFORMATION
  Report Type: Report from Study
  Country: US (occurrence: None)
  Receive Date: 20221103
  Receipt Date: 20230321
  Transmission Date: 20230417
  Serious: Yes (Death, Other)
  Sender: FDA-Public Use
  Company Number: 2022A362449

PATIENT
  Age: 60 Year
  Sex: Male
  Weight: 108.2 kg

DRUGS (1)
  1. IMFINZI [Suspect]
     Active Substance: DURVALUMAB
     Indication: Bile duct cancer
     Route: 042
     Dates: start: 20220214, end: 20220608

REACTIONS (2)
  - Malignant neoplasm progression [Fatal]
  - Off label use [Unknown]
